FAERS Safety Report 23812714 (Version 3)
Quarter: 2025Q4

REPORT INFORMATION
  Report Type: Report from Study
  Country: CA (occurrence: None)
  Receive Date: 20240503
  Receipt Date: 20251224
  Transmission Date: 20260118
  Serious: Yes (Hospitalization, Disabling)
  Sender: CHIESI
  Company Number: CA-CHIESI-2024CHF02469

PATIENT
  Age: 27 Year
  Sex: Female
  Weight: 60.3 kg

DRUGS (2)
  1. DEFERIPRONE [Suspect]
     Active Substance: DEFERIPRONE
     Indication: Thalassaemia
     Dosage: 4500 MILLIGRAM, QD
     Route: 061
     Dates: start: 20130923
  2. DEFERIPRONE [Suspect]
     Active Substance: DEFERIPRONE
     Dosage: 2 DOSAGE FORM, TID
     Route: 061
     Dates: start: 20150914

REACTIONS (9)
  - Bedridden [Recovered/Resolved]
  - Ill-defined disorder [Unknown]
  - Conversion disorder [Not Recovered/Not Resolved]
  - General physical health deterioration [Unknown]
  - Fall [Unknown]
  - Product dose omission issue [Unknown]
  - Off label use [Recovered/Resolved]
  - Prescribed overdose [Not Recovered/Not Resolved]
  - Off label use [Not Recovered/Not Resolved]

NARRATIVE: CASE EVENT DATE: 20130923
